FAERS Safety Report 6308347-9 (Version None)
Quarter: 2009Q3

REPORT INFORMATION
  Report Type: 
  Country: None (occurrence: None)
  Receive Date: 20090813
  Receipt Date: 20090811
  Transmission Date: 20100115
  Serious: Yes (Hospitalization)
  Sender: FDA-Public Use
  Company Number: NL-PFIZER INC-2009239133

PATIENT
  Age: 78 Year

DRUGS (4)
  1. DETRUSITOL SR [Suspect]
     Indication: URINARY INCONTINENCE
     Dosage: UNK
     Dates: end: 20090616
  2. METOPROLOL TARTRATE [Concomitant]
     Dosage: 100 MG, 1X/DAY
     Dates: end: 20090616
  3. SIMVASTATIN [Concomitant]
     Dosage: UNK
     Dates: end: 20090616
  4. PROPRANOLOL [Concomitant]

REACTIONS (1)
  - DELIRIUM [None]
